FAERS Safety Report 7073233-6 (Version None)
Quarter: 2010Q4

REPORT INFORMATION
  Report Type: 
  Country: None (occurrence: None)
  Receive Date: 20101029
  Receipt Date: 20100512
  Transmission Date: 20110411
  Serious: No
  Sender: FDA-Public Use
  Company Number: A0859403A

PATIENT
  Age: 78 Year
  Sex: Female

DRUGS (5)
  1. ADVAIR DISKUS 100/50 [Suspect]
     Indication: ASTHMA
     Route: 055
  2. MEDICATION FOR HIGH BLOOD PRESSURE [Concomitant]
  3. EVISTA [Concomitant]
  4. ANTIBIOTIC [Concomitant]
  5. PROAIR HFA [Concomitant]

REACTIONS (3)
  - DYSPNOEA [None]
  - INHALATION THERAPY [None]
  - RESPIRATORY TRACT INFECTION [None]
